FAERS Safety Report 9226657 (Version 1)
Quarter: 2013Q2

REPORT INFORMATION
  Report Type: Spontaneous
  Country: US (occurrence: None)
  Receive Date: 20130411
  Receipt Date: 20130411
  Transmission Date: 20140414
  Serious: No
  Sender: FDA-Public Use
  Company Number: None

PATIENT
  Age: 62 Year
  Sex: Female

DRUGS (4)
  1. AVASTIN [Suspect]
     Indication: AGE-RELATED MACULAR DEGENERATION
     Dates: start: 20130304, end: 20130304
  2. TETRACAINE [Concomitant]
  3. LIDOCAINE GEL [Concomitant]
  4. 5% BETADINE [Concomitant]

REACTIONS (1)
  - Endophthalmitis [None]
